FAERS Safety Report 20862086 (Version 1)
Quarter: 2022Q2

REPORT INFORMATION
  Report Type: Spontaneous
  Country: US (occurrence: None)
  Receive Date: 20220520
  Receipt Date: 20220520
  Transmission Date: 20220721
  Serious: Yes (Hospitalization)
  Sender: FDA-Public Use
  Company Number: None

PATIENT
  Sex: Female

DRUGS (3)
  1. HYDROCHLOROTHIAZIDE [Suspect]
     Active Substance: HYDROCHLOROTHIAZIDE
     Dosage: FREQUENCY : TWICE A DAY;?
     Route: 048
  2. FAMOTIDINE [Suspect]
     Active Substance: FAMOTIDINE
  3. PEPTO-BISMOL [Suspect]
     Active Substance: BISMUTH SUBSALICYLATE

REACTIONS (1)
  - Heart rate irregular [None]
